FAERS Safety Report 4600078-6 (Version None)
Quarter: 2005Q1

REPORT INFORMATION
  Report Type: 
  Country: None (occurrence: None)
  Receive Date: 20050303
  Receipt Date: 20050214
  Transmission Date: 20050727
  Serious: Yes (Death)
  Sender: FDA-Public Use
  Company Number: 10314

PATIENT
  Age: 34 Year
  Sex: Male

DRUGS (7)
  1. DOXORUBICIN HCL [Suspect]
  2. VINCRISTINE [Suspect]
  3. PREDNISONE [Suspect]
  4. CYCLOPHOSPHAMIDE [Suspect]
  5. RITUXIMAB [Suspect]
  6. LAMIVUDINE [Concomitant]
  7. ADEFOVIR [Concomitant]

REACTIONS (6)
  - CONDITION AGGRAVATED [None]
  - HAEMATEMESIS [None]
  - HEPATIC FAILURE [None]
  - HEPATITIS B [None]
  - INTERNATIONAL NORMALISED RATIO INCREASED [None]
  - RESPIRATORY FAILURE [None]
